FAERS Safety Report 15547071 (Version 2)
Quarter: 2019Q1

REPORT INFORMATION
  Report Type: Report from Study
  Country: US (occurrence: US)
  Receive Date: 20181024
  Receipt Date: 20190330
  Transmission Date: 20190417
  Serious: No
  Sender: FDA-Public Use
  Company Number: PHEH2018US044563

PATIENT
  Sex: Male

DRUGS (1)
  1. ENTRESTO [Suspect]
     Active Substance: SACUBITRIL\VALSARTAN
     Indication: CARDIAC FAILURE
     Route: 048

REACTIONS (8)
  - Memory impairment [Unknown]
  - Depressed mood [Unknown]
  - Headache [Unknown]
  - Weight increased [Unknown]
  - Fluid retention [Unknown]
  - Back pain [Unknown]
  - Depression [Unknown]
  - Drug ineffective [Unknown]
